FAERS Safety Report 16877890 (Version 1)
Quarter: 2019Q4

REPORT INFORMATION
  Report Type: Spontaneous
  Country: NL (occurrence: ES)
  Receive Date: 20191002
  Receipt Date: 20191002
  Transmission Date: 20200122
  Serious: Yes (Life-Threatening, Hospitalization)
  Sender: FDA-Public Use
  Company Number: ES-FRESENIUS KABI-FK201910697

PATIENT
  Age: 82 Year
  Sex: Male
  Weight: 79 kg

DRUGS (2)
  1. LINEZOLID 2 MG/ML [Suspect]
     Active Substance: LINEZOLID
     Indication: BACTERIAL INFECTION
     Route: 042
     Dates: start: 20190625, end: 20190708
  2. GENTAMICIN SULFATE. [Suspect]
     Active Substance: GENTAMICIN SULFATE
     Indication: BACTERIAL INFECTION
     Route: 042
     Dates: start: 20190625, end: 20190708

REACTIONS (1)
  - Acute kidney injury [Recovered/Resolved with Sequelae]

NARRATIVE: CASE EVENT DATE: 20190712
